FAERS Safety Report 9897095 (Version 3)
Quarter: 2014Q2

REPORT INFORMATION
  Report Type: Spontaneous
  Country: US (occurrence: US)
  Receive Date: 20140214
  Receipt Date: 20140407
  Transmission Date: 20141212
  Serious: Yes (Hospitalization)
  Sender: FDA-Public Use
  Company Number: US-BIOGENIDEC-2014BI012192

PATIENT
  Age: 39 Year
  Sex: Female

DRUGS (5)
  1. TECFIDERA [Suspect]
     Indication: MULTIPLE SCLEROSIS
     Route: 048
     Dates: start: 20131208, end: 20131214
  2. TECFIDERA [Suspect]
     Indication: MULTIPLE SCLEROSIS
     Route: 048
     Dates: start: 20131215, end: 20140102
  3. TYSABRI [Concomitant]
     Indication: MULTIPLE SCLEROSIS
  4. FAMOTIDINE [Concomitant]
  5. PROCHLORPERAZINE [Concomitant]

REACTIONS (4)
  - Dehydration [Recovered/Resolved]
  - Tubulointerstitial nephritis [Unknown]
  - Renal failure acute [Unknown]
  - Renal tubular necrosis [Unknown]
